FAERS Safety Report 14310498 (Version 2)
Quarter: 2018Q1

REPORT INFORMATION
  Report Type: Spontaneous
  Country: JP (occurrence: JP)
  Receive Date: 20171220
  Receipt Date: 20180228
  Transmission Date: 20180509
  Serious: Yes (Other)
  Sender: FDA-Public Use
  Company Number: JP-TAKEDA-2017MPI011632

PATIENT
  Age: 84 Year
  Sex: Female

DRUGS (1)
  1. VELCADE [Suspect]
     Active Substance: BORTEZOMIB
     Indication: PLASMA CELL MYELOMA
     Dosage: UNK
     Route: 065

REACTIONS (6)
  - Urinary tract infection [Unknown]
  - Atrial fibrillation [Unknown]
  - Wolff-Parkinson-White syndrome [Unknown]
  - Supraventricular tachycardia [Unknown]
  - Septic shock [Unknown]
  - Ventricular tachycardia [Unknown]
